FAERS Safety Report 4518693-7 (Version None)
Quarter: 2004Q4

REPORT INFORMATION
  Report Type: 
  Country: None (occurrence: None)
  Receive Date: 20041201
  Receipt Date: 20041122
  Transmission Date: 20050328
  Serious: Yes (Other)
  Sender: FDA-Public Use
  Company Number: TUK2004A00132

PATIENT
  Age: 46 Year
  Sex: Male

DRUGS (8)
  1. ACTOS [Suspect]
     Indication: DIABETES MELLITUS
     Dosage: 15 MG, ORAL
     Route: 048
     Dates: start: 20040801, end: 20040905
  2. ALLOPURINOL [Concomitant]
  3. RAMIPRIL [Concomitant]
  4. FENOFIBRATE [Concomitant]
  5. INDOMETHACIN [Concomitant]
  6. ATORVASTATIN (ATORVASTATIN) [Concomitant]
  7. THYROXINE (LEVOTHYROXINE SODIUM) [Concomitant]
  8. METFORMIN HCL [Concomitant]

REACTIONS (1)
  - HAEMATURIA [None]
